FAERS Safety Report 18508650 (Version 2)
Quarter: 2022Q1

REPORT INFORMATION
  Report Type: Spontaneous
  Country: US (occurrence: US)
  Receive Date: 20201117
  Receipt Date: 20220106
  Transmission Date: 20220423
  Serious: Yes (Hospitalization, Other)
  Sender: FDA-Public Use
  Company Number: US-PFIZER INC-2020449647

PATIENT
  Age: 77 Year
  Sex: Female

DRUGS (1)
  1. XELJANZ [Suspect]
     Active Substance: TOFACITINIB CITRATE
     Dosage: UNK

REACTIONS (12)
  - Blood sodium decreased [Unknown]
  - Neoplasm malignant [Unknown]
  - Brain neoplasm [Unknown]
  - Rheumatoid arthritis [Unknown]
  - Malignant melanoma [Unknown]
  - Bone loss [Unknown]
  - Nerve injury [Unknown]
  - Infection [Unknown]
  - Hypertension [Unknown]
  - Cardiac disorder [Unknown]
  - Gastric disorder [Unknown]
  - Heart rate irregular [Unknown]

NARRATIVE: CASE EVENT DATE: 20211201
